FAERS Safety Report 8426209-8 (Version None)
Quarter: 2012Q2

REPORT INFORMATION
  Report Type: 
  Country: None (occurrence: None)
  Receive Date: 20120611
  Receipt Date: 20120529
  Transmission Date: 20120825
  Serious: Yes (Other)
  Sender: FDA-Public Use
  Company Number: GB-SANOFI-AVENTIS-2012SA038071

PATIENT
  Sex: Female

DRUGS (2)
  1. XELODA [Suspect]
     Route: 065
  2. OXALIPLATIN [Suspect]
     Route: 065

REACTIONS (3)
  - CHEILITIS [None]
  - LIP SWELLING [None]
  - RASH [None]
